FAERS Safety Report 10149905 (Version 2)
Quarter: 2014Q2

REPORT INFORMATION
  Report Type: Spontaneous
  Country: US (occurrence: US)
  Receive Date: 20140502
  Receipt Date: 20140506
  Transmission Date: 20141212
  Serious: Yes (Hospitalization, Other)
  Sender: FDA-Public Use
  Company Number: CHPA2014US005761

PATIENT
  Age: 72 Year
  Sex: Female

DRUGS (2)
  1. VOLTAREN GEL [Suspect]
     Indication: ARTHRITIS
     Dosage: HALF TO 3/4 INCH, UNK
     Route: 061
  2. VOLTAREN GEL [Suspect]
     Dosage: HALF TO 3/4 INCH, UNK
     Route: 061

REACTIONS (5)
  - Pancreatitis [Recovered/Resolved]
  - Fungal infection [Recovered/Resolved]
  - Incorrect dose administered [Unknown]
  - Wrong technique in drug usage process [Unknown]
  - Inappropriate schedule of drug administration [Unknown]
